FAERS Safety Report 15452588 (Version 1)
Quarter: 2018Q4

REPORT INFORMATION
  Report Type: Spontaneous
  Country: US (occurrence: US)
  Receive Date: 20181001
  Receipt Date: 20181001
  Transmission Date: 20190204
  Serious: No
  Sender: FDA-Public Use
  Company Number: US-JAZZ-JPI-P-029652

PATIENT
  Age: 43 Year
  Sex: Female
  Weight: 73 kg

DRUGS (14)
  1. RHINOCORT AQUA [Concomitant]
     Active Substance: BUDESONIDE
  2. LOESTRIN NOS [Concomitant]
     Active Substance: ETHINYL ESTRADIOL\NORETHINDRONE ACETATE
  3. NORCO [Concomitant]
     Active Substance: ACETAMINOPHEN\HYDROCODONE BITARTRATE
  4. XYREM [Suspect]
     Active Substance: SODIUM OXYBATE
     Indication: NARCOLEPSY
     Dosage: 2.25 G, BID
     Route: 048
     Dates: start: 20130118, end: 20130206
  5. XYREM [Suspect]
     Active Substance: SODIUM OXYBATE
     Indication: SOMNOLENCE
     Dosage: 3 G, BID
     Route: 048
     Dates: start: 20130207
  6. LEVSIN [Concomitant]
     Active Substance: HYOSCYAMINE SULFATE
  7. SAVELLA [Concomitant]
     Active Substance: MILNACIPRAN HYDROCHLORIDE
  8. LAORATADINE [Concomitant]
  9. CALCIUM [Concomitant]
     Active Substance: CALCIUM
  10. GLUCOSAMINE [Concomitant]
     Active Substance: GLUCOSAMINE
  11. RITALIN [Concomitant]
     Active Substance: METHYLPHENIDATE HYDROCHLORIDE
  12. XYREM [Suspect]
     Active Substance: SODIUM OXYBATE
     Indication: CATAPLEXY
  13. CYCLOBENZAPRINE HYDROCHLORIDE. [Concomitant]
     Active Substance: CYCLOBENZAPRINE HYDROCHLORIDE
  14. MAXALT [Concomitant]
     Active Substance: RIZATRIPTAN BENZOATE

REACTIONS (14)
  - Fatigue [Not Recovered/Not Resolved]
  - Stress [Not Recovered/Not Resolved]
  - Back pain [Unknown]
  - Condition aggravated [Recovering/Resolving]
  - Muscle tightness [Recovering/Resolving]
  - Snoring [Not Recovered/Not Resolved]
  - Pain in extremity [Recovering/Resolving]
  - Condition aggravated [Not Recovered/Not Resolved]
  - Paraesthesia [Recovering/Resolving]
  - Sleep paralysis [Recovered/Resolved]
  - Muscle spasms [Recovering/Resolving]
  - Therapeutic response decreased [Unknown]
  - Sinus disorder [Not Recovered/Not Resolved]
  - Night sweats [Not Recovered/Not Resolved]

NARRATIVE: CASE EVENT DATE: 201301
